FAERS Safety Report 13153583 (Version 1)
Quarter: 2017Q1

REPORT INFORMATION
  Report Type: Spontaneous
  Country: US (occurrence: US)
  Receive Date: 20170120
  Receipt Date: 20170120
  Transmission Date: 20170428
  Serious: Yes (Other)
  Sender: FDA-Public Use
  Company Number: None

PATIENT
  Age: 36 Year
  Sex: Female
  Weight: 67.5 kg

DRUGS (4)
  1. AZO YEAST [Suspect]
     Active Substance: EUPATORIUM PERFOLIATUM FLOWERING TOP\VISCUM ALBUM LEAF
     Indication: VULVOVAGINAL MYCOTIC INFECTION
     Dosage: ?          QUANTITY:1 TABLET(S);?
     Route: 048
     Dates: start: 20170113, end: 20170113
  2. LISINOPRIL. [Concomitant]
     Active Substance: LISINOPRIL
  3. MOTRIN [Concomitant]
     Active Substance: IBUPROFEN
  4. CRESTOR [Concomitant]
     Active Substance: ROSUVASTATIN CALCIUM

REACTIONS (2)
  - Fungal infection [None]
  - Condition aggravated [None]

NARRATIVE: CASE EVENT DATE: 20170113
